FAERS Safety Report 18615029 (Version 2)
Quarter: 2021Q2

REPORT INFORMATION
  Report Type: Spontaneous
  Country: PL (occurrence: PL)
  Receive Date: 20201214
  Receipt Date: 20210604
  Transmission Date: 20210717
  Serious: Yes (Other)
  Sender: FDA-Public Use
  Company Number: PL-TAKEDA-2020TUS054942

PATIENT
  Age: 43 Year
  Sex: Male

DRUGS (2)
  1. PONATINIB [Suspect]
     Active Substance: PONATINIB
     Indication: CHRONIC MYELOID LEUKAEMIA
     Dosage: 45 MILLIGRAM, QD
     Route: 065
     Dates: start: 201705
  2. PONATINIB [Suspect]
     Active Substance: PONATINIB
     Dosage: 15 MILLIGRAM, QD
     Route: 065

REACTIONS (6)
  - Hypertension [Unknown]
  - Coronary artery disease [Recovered/Resolved]
  - Myocardial ischaemia [Unknown]
  - Cardiovascular disorder [Unknown]
  - Hyperlipidaemia [Recovered/Resolved]
  - Thrombocytopenia [Not Recovered/Not Resolved]
